FAERS Safety Report 12122538 (Version 1)
Quarter: 2016Q1

REPORT INFORMATION
  Report Type: Report from Study
  Country: HU (occurrence: HU)
  Receive Date: 20160226
  Receipt Date: 20160226
  Transmission Date: 20160526
  Serious: Yes (Hospitalization)
  Sender: FDA-Public Use
  Company Number: HU-ABBVIE-16P-076-1566599-00

PATIENT
  Age: 2 Month
  Sex: Male

DRUGS (3)
  1. SYNAGIS [Suspect]
     Active Substance: PALIVIZUMAB
     Indication: RESPIRATORY SYNCYTIAL VIRUS INFECTION
     Dosage: SYNAGIS WAS GIVE BASED ON BODY WEIGHT
     Route: 030
     Dates: start: 20151211, end: 20151211
  2. SYNAGIS [Suspect]
     Active Substance: PALIVIZUMAB
     Dosage: SYNAGIS WAS GIVE BASED ON BODY WEIGHT
     Route: 030
     Dates: start: 20160114, end: 20160114
  3. SYNAGIS [Suspect]
     Active Substance: PALIVIZUMAB
     Dosage: SYNAGIS WAS GIVE BASED ON BODY WEIGHT
     Route: 030
     Dates: start: 20160215, end: 20160215

REACTIONS (1)
  - Respiratory syncytial virus infection [Recovering/Resolving]

NARRATIVE: CASE EVENT DATE: 20160213
